FAERS Safety Report 7778998-3 (Version None)
Quarter: 2011Q3

REPORT INFORMATION
  Report Type: 
  Country: None (occurrence: None)
  Receive Date: 20110926
  Receipt Date: 20110916
  Transmission Date: 20111222
  Serious: Yes (Hospitalization)
  Sender: FDA-Public Use
  Company Number: US-MPIJNJ-2011-04349

PATIENT
  Sex: Female
  Weight: 64.399 kg

DRUGS (3)
  1. TREANDA [Suspect]
     Indication: LYMPHOMA
     Dosage: 145 MG, CYCLIC
     Route: 042
     Dates: start: 20110810, end: 20110908
  2. VELCADE [Suspect]
     Indication: LYMPHOMA
     Dosage: UNK
     Dates: start: 20110810, end: 20110914
  3. RITUXIMAB [Suspect]
     Indication: LYMPHOMA
     Dosage: 600 MG, CYCLIC
     Route: 042
     Dates: start: 20110810, end: 20110907

REACTIONS (3)
  - TACHYCARDIA [None]
  - RASH [None]
  - TREMOR [None]
